FAERS Safety Report 7372727-3 (Version None)
Quarter: 2011Q1

REPORT INFORMATION
  Report Type: 
  Country: None (occurrence: None)
  Receive Date: 20110324
  Receipt Date: 20110310
  Transmission Date: 20110831
  Serious: Yes (Hospitalization, Other)
  Sender: FDA-Public Use
  Company Number: US-ELI_LILLY_AND_COMPANY-US201102000619

PATIENT
  Sex: Female
  Weight: 61.224 kg

DRUGS (2)
  1. CYMBALTA [Suspect]
     Dosage: 60 MG, DAILY (1/D)
     Dates: end: 20100802
  2. CYMBALTA [Suspect]
     Indication: MAJOR DEPRESSION
     Dosage: 30 MG, UNKNOWN
     Dates: start: 20100720

REACTIONS (4)
  - BIPOLAR I DISORDER [None]
  - AGGRESSION [None]
  - SUICIDE ATTEMPT [None]
  - WEIGHT DECREASED [None]
